FAERS Safety Report 9922668 (Version 1)
Quarter: 2014Q1

REPORT INFORMATION
  Report Type: Spontaneous
  Country: JP (occurrence: JP)
  Receive Date: 20140225
  Receipt Date: 20140225
  Transmission Date: 20141002
  Serious: Yes (Other)
  Sender: FDA-Public Use
  Company Number: JP-BRISTOL-MYERS SQUIBB COMPANY-20268579

PATIENT
  Age: 52 Year
  Sex: Male

DRUGS (1)
  1. METGLUCO [Suspect]
     Route: 048
     Dates: start: 2014

REACTIONS (11)
  - Multi-organ failure [Unknown]
  - Circulatory collapse [Unknown]
  - Rhabdomyolysis [Unknown]
  - Diabetic ketoacidosis [Unknown]
  - Depressed level of consciousness [Unknown]
  - Blood ketone body increased [Unknown]
  - Blood lactic acid increased [Unknown]
  - Acidosis [Unknown]
  - Thirst [Unknown]
  - Decreased appetite [Unknown]
  - Malaise [Unknown]
